FAERS Safety Report 5259207-6 (Version None)
Quarter: 2007Q1

REPORT INFORMATION
  Report Type: 
  Country: None (occurrence: None)
  Receive Date: 20070305
  Receipt Date: 20070226
  Transmission Date: 20070707
  Serious: Yes (Other)
  Sender: FDA-Public Use
  Company Number: 237324

PATIENT
  Age: 37 Year
  Sex: Female

DRUGS (2)
  1. XOLAIR [Suspect]
     Indication: DRUG USE FOR UNKNOWN INDICATION
     Dosage: 425, Q2W, SUBCUTANEOUS
     Route: 058
  2. ORAL CONTRACEPTIVES (ORAL CONTRACEPTIVES NOS) [Concomitant]

REACTIONS (1)
  - PULMONARY EMBOLISM [None]
